FAERS Safety Report 4405505-5 (Version None)
Quarter: 2004Q3

REPORT INFORMATION
  Report Type: 
  Country: None (occurrence: None)
  Receive Date: 20040723
  Receipt Date: 20030915
  Transmission Date: 20050211
  Serious: No
  Sender: FDA-Public Use
  Company Number: US-GLAXOSMITHKLINE-A0425948A

PATIENT
  Sex: Male

DRUGS (6)
  1. AVANDIA [Suspect]
     Dosage: 4MG TWICE PER DAY
     Route: 048
  2. INSULIN [Concomitant]
  3. GLUCOVANCE [Concomitant]
  4. ZOCOR [Concomitant]
  5. PRINZIDE [Concomitant]
  6. ASPIRIN [Concomitant]

REACTIONS (1)
  - WEIGHT INCREASED [None]
